FAERS Safety Report 19875126 (Version 1)
Quarter: 2021Q3

REPORT INFORMATION
  Report Type: Spontaneous
  Country: CA (occurrence: CA)
  Receive Date: 20210923
  Receipt Date: 20210923
  Transmission Date: 20211014
  Serious: Yes (Other)
  Sender: FDA-Public Use
  Company Number: CA-TEVA-2021-CA-1956293

PATIENT
  Age: 51 Year
  Sex: Female

DRUGS (6)
  1. PACLITAXEL. [Concomitant]
     Active Substance: PACLITAXEL
     Route: 065
  2. CYCLOPHOSPHAMIDE. [Concomitant]
     Active Substance: CYCLOPHOSPHAMIDE
     Route: 065
  3. DOXARUBICIN [Concomitant]
     Route: 065
  4. TAMOXIFEN [Suspect]
     Active Substance: TAMOXIFEN
     Indication: PRODUCT USED FOR UNKNOWN INDICATION
     Dosage: 20 MILLIGRAM DAILY;
     Route: 048
  5. IBRANCE [Concomitant]
     Active Substance: PALBOCICLIB
     Dosage: 125 MILLIGRAM DAILY;
     Route: 048
  6. LETROZOLE. [Concomitant]
     Active Substance: LETROZOLE
     Route: 065

REACTIONS (1)
  - Disease progression [Unknown]
